FAERS Safety Report 23266232 (Version 5)
Quarter: 2024Q1

REPORT INFORMATION
  Report Type: Spontaneous
  Country: TW (occurrence: TW)
  Receive Date: 20231206
  Receipt Date: 20240314
  Transmission Date: 20240410
  Serious: Yes (Hospitalization)
  Sender: FDA-Public Use
  Company Number: TW-Accord-393425

PATIENT
  Age: 58 Year
  Sex: Male
  Weight: 51.0 kg

DRUGS (27)
  1. FLUOROURACIL [Suspect]
     Active Substance: FLUOROURACIL
     Indication: Squamous cell carcinoma of head and neck
     Dosage: QD
     Route: 042
     Dates: start: 20231012, end: 20231017
  2. CISPLATIN [Suspect]
     Active Substance: CISPLATIN
     Indication: Squamous cell carcinoma of head and neck
     Dosage: 1Q3W
     Route: 042
     Dates: start: 20231012, end: 20231102
  3. PEMBROLIZUMAB [Concomitant]
     Active Substance: PEMBROLIZUMAB
     Indication: Squamous cell carcinoma of head and neck
     Dosage: 1Q3W
     Route: 042
     Dates: start: 20231012, end: 20231102
  4. ACTEIN [Concomitant]
     Dates: start: 20230907, end: 20231116
  5. LEVOFLOXACIN [Concomitant]
     Active Substance: LEVOFLOXACIN
     Dates: start: 20231016, end: 20231023
  6. MONTMORILLONITE [Concomitant]
     Active Substance: MONTMORILLONITE
     Dates: start: 20231019, end: 20231116
  7. LEVOTHYROXINE [Concomitant]
     Active Substance: LEVOTHYROXINE\LEVOTHYROXINE SODIUM
     Dates: start: 20230522, end: 20231126
  8. FENTANYL [Concomitant]
     Active Substance: FENTANYL\FENTANYL CITRATE
     Dates: start: 20230917, end: 20240124
  9. DIMETHICONE [Concomitant]
     Active Substance: DIMETHICONE
     Dates: start: 20231026, end: 20231116
  10. LENOGRASTIM [Concomitant]
     Active Substance: LENOGRASTIM
     Dates: start: 20231026, end: 20231026
  11. NETUPITANT\PALONOSETRON HYDROCHLORIDE [Concomitant]
     Active Substance: NETUPITANT\PALONOSETRON HYDROCHLORIDE
     Dates: start: 20231012, end: 20240109
  12. ACETAMINOPHEN\TRAMADOL [Concomitant]
     Active Substance: ACETAMINOPHEN\TRAMADOL
     Dates: start: 20230814
  13. POTASSIUM GLUCONATE [Concomitant]
     Active Substance: POTASSIUM GLUCONATE
     Dates: start: 20231017, end: 20231020
  14. SILODOSIN [Concomitant]
     Active Substance: SILODOSIN
     Dates: start: 20230907, end: 20231115
  15. TRANSAMIN [Concomitant]
     Active Substance: TRANEXAMIC ACID
     Dates: start: 20231016, end: 20231023
  16. ACETAMINOPHEN [Concomitant]
     Active Substance: ACETAMINOPHEN
     Dates: start: 20231103, end: 20231104
  17. CEFEPIME HYDROCHLORIDE [Concomitant]
     Active Substance: CEFEPIME HYDROCHLORIDE
     Dates: start: 20231103, end: 20231109
  18. ACETAMINOPHEN [Concomitant]
     Active Substance: ACETAMINOPHEN
     Dates: start: 20231105, end: 20231109
  19. PROCHLORPERAZINE [Concomitant]
     Active Substance: PROCHLORPERAZINE
     Dates: start: 20231107, end: 20231107
  20. LORAZEPAM [Concomitant]
     Active Substance: LORAZEPAM
     Dates: start: 20231108, end: 20231109
  21. IMOVANE [Concomitant]
     Active Substance: ZOPICLONE
     Dates: start: 20231108, end: 20231116
  22. NOVAMIN [Concomitant]
     Dates: start: 20231108, end: 20231115
  23. CHLORPHENIRAMINE [Concomitant]
     Active Substance: CHLORPHENIRAMINE
     Dates: start: 20231102, end: 20231105
  24. METOCLOPRAMIDE [Concomitant]
     Active Substance: METOCLOPRAMIDE
     Dates: start: 20231102, end: 20231106
  25. ALBUMIN HUMAN [Concomitant]
     Active Substance: ALBUMIN HUMAN
     Dates: start: 20231116, end: 20231116
  26. FUROSEMIDE [Concomitant]
     Active Substance: FUROSEMIDE
     Dates: start: 20231012, end: 20240109
  27. FLUOROURACIL [Suspect]
     Active Substance: FLUOROURACIL
     Indication: Squamous cell carcinoma of head and neck
     Dosage: 1Q3W
     Route: 042
     Dates: start: 20231102, end: 20231106

REACTIONS (1)
  - Febrile neutropenia [Recovered/Resolved]

NARRATIVE: CASE EVENT DATE: 20231116
